FAERS Safety Report 16737309 (Version 1)
Quarter: 2019Q3

REPORT INFORMATION
  Report Type: Spontaneous
  Country: FR (occurrence: FR)
  Receive Date: 20190823
  Receipt Date: 20190823
  Transmission Date: 20191005
  Serious: Yes (Life-Threatening)
  Sender: FDA-Public Use
  Company Number: FR-TEVA-2019-FR-1094748

PATIENT
  Age: 50 Year
  Sex: Female
  Weight: 60 kg

DRUGS (2)
  1. IBUPROFEN. [Suspect]
     Active Substance: IBUPROFEN
     Indication: PULMONARY EMBOLISM
     Dosage: 6 DF
     Route: 048
     Dates: start: 2016, end: 20190415
  2. PREVISCAN [FLUINDIONE] [Interacting]
     Active Substance: FLUINDIONE
     Indication: PULMONARY EMBOLISM
     Dosage: 5 MG
     Route: 048
     Dates: start: 2016, end: 20190415

REACTIONS (3)
  - International normalised ratio increased [Recovered/Resolved]
  - Drug interaction [Unknown]
  - Shock haemorrhagic [Recovered/Resolved]

NARRATIVE: CASE EVENT DATE: 20190415
